FAERS Safety Report 7632098-1 (Version None)
Quarter: 2011Q3

REPORT INFORMATION
  Report Type: 
  Country: None (occurrence: None)
  Receive Date: 20110725
  Receipt Date: 20110725
  Transmission Date: 20111222
  Serious: Yes (Hospitalization)
  Sender: FDA-Public Use
  Company Number: None

PATIENT
  Sex: Male
  Weight: 111.13 kg

DRUGS (1)
  1. HYDROXYCHLOROQUINE SULFATE [Suspect]
     Indication: PSORIATIC ARTHROPATHY
     Dosage: 200 MG
     Route: 048
     Dates: start: 20110614, end: 20110702

REACTIONS (1)
  - STEVENS-JOHNSON SYNDROME [None]
